FAERS Safety Report 25143955 (Version 1)
Quarter: 2025Q2

REPORT INFORMATION
  Report Type: Other
  Country: US (occurrence: US)
  Receive Date: 20250401
  Receipt Date: 20250401
  Transmission Date: 20250717
  Serious: Yes (Other)
  Sender: TRAVERE THERAPEUTICS
  Company Number: US-TRAVERE-2025TVT00370

PATIENT
  Age: 76 Year
  Sex: Male

DRUGS (7)
  1. FILSPARI [Suspect]
     Active Substance: SPARSENTAN
     Indication: IgA nephropathy
     Dosage: EXPIRY DATE: 11-DEC-2026
     Route: 048
  2. FILSPARI [Suspect]
     Active Substance: SPARSENTAN
     Dosage: EXPIRY DATE: 11-DEC-2026
     Route: 048
     Dates: start: 20250211, end: 20250313
  3. EZETIMIBE [Concomitant]
     Active Substance: EZETIMIBE
  4. GEMTESA [Concomitant]
     Active Substance: VIBEGRON
  5. PREDNISONE [Concomitant]
     Active Substance: PREDNISONE
  6. ALFUZOSIN [Concomitant]
     Active Substance: ALFUZOSIN
  7. ZYTIGA [Concomitant]
     Active Substance: ABIRATERONE ACETATE

REACTIONS (2)
  - Hypotension [Recovered/Resolved]
  - Dizziness [None]

NARRATIVE: CASE EVENT DATE: 20250310
